FAERS Safety Report 6307320-4 (Version None)
Quarter: 2009Q3

REPORT INFORMATION
  Report Type: 
  Country: None (occurrence: None)
  Receive Date: 20090813
  Receipt Date: 20080107
  Transmission Date: 20100115
  Serious: Yes (Hospitalization, Other)
  Sender: FDA-Public Use
  Company Number: US-ASTRAZENECA-2006UW22967

PATIENT
  Age: 430 Month
  Sex: Male
  Weight: 77.1 kg

DRUGS (8)
  1. SEROQUEL [Suspect]
     Indication: DEPRESSION
     Route: 048
     Dates: start: 20051001, end: 20051101
  2. SEROQUEL [Suspect]
     Route: 048
     Dates: start: 20051111
  3. LISINOPRIL [Concomitant]
     Indication: HYPERTENSION
     Dosage: STRENGTH- 10 MG, 20 MG  DOSE- 10 MG - 20 MG DAILY
     Route: 048
  4. VICODIN [Concomitant]
     Indication: PAIN
     Dosage: 5/500 TWO TABLETS EVERY FOUR HOURS AS REQUIRED AND ONE TABLET TWO TIMES A DAY
     Route: 048
  5. ASPIRIN [Concomitant]
     Route: 048
  6. PERCOCET [Concomitant]
     Indication: PAIN
     Dosage: 5/325 MG ONE TO TWO TABLETS EVERY SIX HOURS AS NEEDED
  7. FLEXERIL [Concomitant]
     Route: 048
  8. NAPROSYN [Concomitant]
     Route: 048

REACTIONS (5)
  - DIABETES MELLITUS [None]
  - DIABETIC KETOACIDOSIS [None]
  - DIABETIC RETINOPATHY [None]
  - TYPE 1 DIABETES MELLITUS [None]
  - VISUAL ACUITY REDUCED [None]
